FAERS Safety Report 12231930 (Version 1)
Quarter: 2016Q2

REPORT INFORMATION
  Report Type: Report from Study
  Country: US (occurrence: US)
  Receive Date: 20160401
  Receipt Date: 20160401
  Transmission Date: 20160815
  Serious: Yes (Death)
  Sender: FDA-Public Use
  Company Number: US-EXELIXIS-CABO-16006171

PATIENT
  Age: 50 Year
  Sex: Male

DRUGS (1)
  1. COMETRIQ [Suspect]
     Active Substance: CABOZANTINIB S-MALATE
     Indication: MALIGNANT MELANOMA
     Dosage: 140 MG, QD
     Route: 048
     Dates: start: 20151215, end: 201603

REACTIONS (2)
  - Death [Fatal]
  - Off label use [Unknown]

NARRATIVE: CASE EVENT DATE: 20160314
